FAERS Safety Report 11940847 (Version 2)
Quarter: 2016Q1

REPORT INFORMATION
  Report Type: Report from Study
  Country: US (occurrence: US)
  Receive Date: 20160122
  Receipt Date: 20160128
  Transmission Date: 20160526
  Serious: Yes (Hospitalization, Other)
  Sender: FDA-Public Use
  Company Number: US-NOVOPROD-476175

PATIENT
  Age: 59 Year
  Sex: Female
  Weight: 87.75 kg

DRUGS (3)
  1. NOVORAPID [Suspect]
     Active Substance: INSULIN ASPART
     Dosage: SLIDING SCALE, TID (BEFORE MEALS)
     Dates: start: 201502
  2. NOVORAPID [Suspect]
     Active Substance: INSULIN ASPART
     Indication: TYPE 2 DIABETES MELLITUS
     Dosage: SLIDING SCALE, TID (AFTER MEALS)
     Route: 058
     Dates: end: 201502
  3. IMITREX [Concomitant]
     Active Substance: SUMATRIPTAN SUCCINATE
     Indication: MIGRAINE

REACTIONS (4)
  - Cataract [Not Recovered/Not Resolved]
  - Nausea [Unknown]
  - Diabetic ketoacidotic hyperglycaemic coma [Recovered/Resolved]
  - Malaise [Unknown]

NARRATIVE: CASE EVENT DATE: 2013
